FAERS Safety Report 8143545-3 (Version None)
Quarter: 2012Q1

REPORT INFORMATION
  Report Type: 
  Country: None (occurrence: None)
  Receive Date: 20120103
  Receipt Date: 20111103
  Transmission Date: 20120608
  Serious: No
  Sender: FDA-Public Use
  Company Number: AE-2011-002987

PATIENT
  Sex: Male

DRUGS (3)
  1. RIBAVIRIN [Concomitant]
  2. INCIVEK [Suspect]
     Dates: start: 20110930, end: 20111012
  3. PEGINTERFERON ALFA-2A [Concomitant]

REACTIONS (1)
  - RASH [None]
